FAERS Safety Report 13841967 (Version 1)
Quarter: 2017Q3

REPORT INFORMATION
  Report Type: Spontaneous
  Country: US (occurrence: US)
  Receive Date: 20170807
  Receipt Date: 20170807
  Transmission Date: 20171127
  Serious: Yes (Other)
  Sender: FDA-Public Use
  Company Number: US-AMGEN-USASP2017066075

PATIENT
  Age: 23 Year
  Sex: Female
  Weight: 88.2 kg

DRUGS (4)
  1. PREDNISONE. [Concomitant]
     Active Substance: PREDNISONE
     Indication: IMMUNE THROMBOCYTOPENIC PURPURA
     Dosage: 20 MG, BID
     Route: 048
  2. NPLATE [Suspect]
     Active Substance: ROMIPLOSTIM
     Indication: IMMUNE THROMBOCYTOPENIC PURPURA
     Dosage: 900 MUG, QWK
     Route: 058
     Dates: start: 20170224
  3. NPLATE [Suspect]
     Active Substance: ROMIPLOSTIM
     Dosage: 1 MUG/KG, UNK
     Route: 065
     Dates: start: 20170224
  4. NPLATE [Suspect]
     Active Substance: ROMIPLOSTIM
     Dosage: 7 MUG/KG, UNK
     Route: 065

REACTIONS (1)
  - Therapeutic response decreased [Unknown]
